FAERS Safety Report 7572832-2 (Version None)
Quarter: 2011Q2

REPORT INFORMATION
  Report Type: 
  Country: None (occurrence: None)
  Receive Date: 20110627
  Receipt Date: 20110623
  Transmission Date: 20111010
  Serious: Yes (Other)
  Sender: FDA-Public Use
  Company Number: US-PFIZER INC-2011140296

PATIENT
  Sex: Female
  Weight: 52.61 kg

DRUGS (3)
  1. DILANTIN [Suspect]
     Indication: CONVULSION
     Dosage: 100 MG, 2X/DAY
     Route: 048
     Dates: start: 19480101
  2. PRIMIDONE [Suspect]
     Indication: CONVULSION
     Dosage: 250 MG, 2X/DAY
     Route: 048
  3. PHENOBARBITAL TAB [Suspect]
     Indication: CONVULSION
     Dosage: UNK
     Dates: start: 19480101, end: 19580101

REACTIONS (1)
  - CONVULSION [None]
